FAERS Safety Report 13731047 (Version 1)
Quarter: 2017Q3

REPORT INFORMATION
  Report Type: Spontaneous
  Country: US (occurrence: US)
  Receive Date: 20170707
  Receipt Date: 20170707
  Transmission Date: 20171127
  Serious: No
  Sender: FDA-Public Use
  Company Number: US-JNJFOC-20170400995

PATIENT
  Age: 66 Year
  Sex: Male
  Weight: 96.16 kg

DRUGS (8)
  1. NITROGLYCERINE [Concomitant]
     Active Substance: NITROGLYCERIN
     Route: 060
  2. QUETIAPINE. [Concomitant]
     Active Substance: QUETIAPINE
     Route: 048
  3. ATORVASTATIN [Concomitant]
     Active Substance: ATORVASTATIN
     Route: 065
  4. XARELTO [Suspect]
     Active Substance: RIVAROXABAN
     Indication: ATRIAL FIBRILLATION
     Route: 048
  5. METOPROLOL. [Concomitant]
     Active Substance: METOPROLOL
     Dosage: EVERY MORNING
     Route: 048
  6. DULOXETINE. [Concomitant]
     Active Substance: DULOXETINE
     Dosage: EVERY MORNING
     Route: 065
  7. XARELTO [Suspect]
     Active Substance: RIVAROXABAN
     Indication: CEREBROVASCULAR ACCIDENT PROPHYLAXIS
     Route: 048
  8. HYDROXYZINE [Concomitant]
     Active Substance: HYDROXYZINE HYDROCHLORIDE
     Route: 065

REACTIONS (5)
  - Wound haemorrhage [Recovered/Resolved]
  - Skin abrasion [Recovered/Resolved]
  - Incorrect dose administered [Unknown]
  - Antinuclear antibody positive [Unknown]
  - Off label use [Unknown]

NARRATIVE: CASE EVENT DATE: 201703
